FAERS Safety Report 7137137-2 (Version None)
Quarter: 2010Q4

REPORT INFORMATION
  Report Type: 
  Country: None (occurrence: None)
  Receive Date: 20101206
  Receipt Date: 20070423
  Transmission Date: 20110411
  Serious: Yes (Death)
  Sender: FDA-Public Use
  Company Number: US-ACTELION-A-US2007-15578

PATIENT

DRUGS (12)
  1. ILOPROST INHALATION SOLUTION 5UG US [Suspect]
     Indication: PULMONARY ARTERIAL HYPERTENSION
     Dosage: 5 UG, 6-9 X DAY
     Dates: start: 20070329, end: 20070407
  2. ILOPROST INHALATION SOLUTION 5UG US [Suspect]
     Dosage: 5 UG, 4 X DAY
     Route: 055
     Dates: start: 20070408, end: 20070422
  3. TRACLEER [Concomitant]
     Indication: PULMONARY HYPERTENSION
  4. XANAX [Concomitant]
  5. LASIX [Concomitant]
  6. COUMADIN [Concomitant]
  7. VIAGRA [Concomitant]
  8. POTASSIUM CHLORIDE [Concomitant]
  9. SPIRONOLACTONE [Concomitant]
  10. LORTAB [Concomitant]
  11. DIGITEK [Concomitant]
  12. PHENERGAN [Concomitant]

REACTIONS (5)
  - CHEST PAIN [None]
  - DEATH [None]
  - DIZZINESS [None]
  - FLUSHING [None]
  - HEADACHE [None]
